FAERS Safety Report 8030217-9 (Version None)
Quarter: 2011Q4

REPORT INFORMATION
  Report Type: 
  Country: None (occurrence: None)
  Receive Date: 20111130
  Receipt Date: 20110705
  Transmission Date: 20120403
  Serious: Yes (Hospitalization)
  Sender: FDA-Public Use
  Company Number: US201007005280

PATIENT
  Sex: Male
  Weight: 115.6 kg

DRUGS (8)
  1. AMARYL [Concomitant]
  2. BYETTA [Suspect]
     Dates: start: 20050101, end: 20060101
  3. BYETTA [Suspect]
     Dates: start: 20080101, end: 20080801
  4. SPIRONOLACTONE [Concomitant]
  5. FUROSEMIDE [Concomitant]
  6. DILTIAZEM [Concomitant]
  7. NITROQUICK (GLYCERYL TRINITRATE) [Concomitant]
  8. LOVAZA [Concomitant]

REACTIONS (2)
  - PANCREATITIS ACUTE [None]
  - OFF LABEL USE [None]
